FAERS Safety Report 5009810-3 (Version None)
Quarter: 2006Q2

REPORT INFORMATION
  Report Type: 
  Country: None (occurrence: None)
  Receive Date: 20060522
  Receipt Date: 20060516
  Transmission Date: 20061013
  Serious: Yes (Other)
  Sender: FDA-Public Use
  Company Number: 2006-04-1563

PATIENT
  Age: 55 Year
  Sex: Female

DRUGS (5)
  1. AERIUS (DESLORATADINE)  TABLETS 5MG [Suspect]
     Indication: RHINITIS
     Dosage: *5 MG ORAL
     Route: 048
     Dates: start: 20050816, end: 20060101
  2. AERIUS (DESLORATADINE)  TABLETS 5MG [Suspect]
     Indication: RHINITIS
     Dosage: *5 MG ORAL
     Route: 048
     Dates: start: 20060401
  3. XANAX [Concomitant]
  4. OMEPRAZOLE [Concomitant]
  5. ESTROFEM [Concomitant]

REACTIONS (1)
  - ANGIONEUROTIC OEDEMA [None]
